FAERS Safety Report 14632628 (Version 2)
Quarter: 2018Q2

REPORT INFORMATION
  Report Type: Spontaneous
  Country: US (occurrence: US)
  Receive Date: 20180313
  Receipt Date: 20180417
  Transmission Date: 20180711
  Serious: No
  Sender: FDA-Public Use
  Company Number: US-TEVA-2018-US-858424

PATIENT
  Sex: Female

DRUGS (13)
  1. MECLIZINE [Concomitant]
     Active Substance: MECLIZINE HYDROCHLORIDE
     Dosage: 75 MILLIGRAM DAILY; 1 TABLET 3 TIMES DAILY WITH ALPRAZOLAM
  2. FOLIC ACID. [Concomitant]
     Active Substance: FOLIC ACID
     Dosage: 1 MILLIGRAM DAILY;
  3. ALEVE [Concomitant]
     Active Substance: NAPROXEN SODIUM
     Dosage: 2 AS NEEDED
  4. VITAMIN D [Concomitant]
     Active Substance: CHOLECALCIFEROL
     Dosage: 5000 IU 4 TIMES A WEEK (SUN., TUES., THURS., SAT.AM)
  5. ISONIAZID. [Concomitant]
     Active Substance: ISONIAZID
     Dosage: 300 MILLIGRAM DAILY;
  6. NICOTENE [Concomitant]
     Active Substance: NICOTINE
     Dosage: PATCH 14 MG
  7. HYDROXYCHLOROQUINE [Concomitant]
     Active Substance: HYDROXYCHLOROQUINE
     Dosage: 400 MILLIGRAM DAILY;
  8. ASPRIN [Concomitant]
     Active Substance: ASPIRIN
     Dosage: 81 MILLIGRAM DAILY;
  9. METHOTREXATE. [Concomitant]
     Active Substance: METHOTREXATE
     Dosage: 25 MG ONCE A WEEK INJECT 0.6 ML (MON. PM AT BEDTIME)
  10. BUPROPION. [Concomitant]
     Active Substance: BUPROPION
     Dosage: 300 MILLIGRAM DAILY;
  11. OMEPRAZOLE. [Concomitant]
     Active Substance: OMEPRAZOLE
     Dosage: 40 MILLIGRAM DAILY;
  12. ALPRAZOLAM. [Suspect]
     Active Substance: ALPRAZOLAM
     Indication: VERTIGO
     Dosage: .75 MILLIGRAM DAILY;
     Dates: start: 20171108, end: 20180210
  13. MONTELUKAST [Concomitant]
     Active Substance: MONTELUKAST SODIUM
     Dosage: 25 MILLIGRAM DAILY;

REACTIONS (1)
  - Drug screen negative [Unknown]

NARRATIVE: CASE EVENT DATE: 20180122
